FAERS Safety Report 8737902 (Version 3)
Quarter: 2013Q4

REPORT INFORMATION
  Report Type: Spontaneous
  Country: US (occurrence: US)
  Receive Date: 20120823
  Receipt Date: 20131108
  Transmission Date: 20140711
  Serious: Yes (Hospitalization)
  Sender: FDA-Public Use
  Company Number: US-009507513-1208USA006056

PATIENT
  Age: 10 Year
  Sex: Male
  Weight: 19.1 kg

DRUGS (13)
  1. NOXAFIL [Suspect]
     Indication: ZYGOMYCOSIS
     Dosage: 100 MG, TID
     Route: 050
  2. NOXAFIL [Interacting]
     Dosage: 600 MG, Q6H
     Route: 050
  3. NOXAFIL [Interacting]
     Dosage: 400 MG, Q4H
     Route: 050
  4. NOXAFIL [Interacting]
     Dosage: 800 MG, Q6H
     Route: 048
  5. PHENYTOIN [Interacting]
     Indication: CONVULSION PROPHYLAXIS
     Dosage: UNK
  6. SUCRALFATE [Interacting]
     Dosage: UNK
  7. SUCRALFATE [Interacting]
     Dosage: UNK
     Route: 048
  8. PANTOPRAZOLE [Interacting]
     Dosage: UNK
     Route: 042
  9. FAMOTIDINE [Interacting]
     Dosage: UNK
  10. MICAFUNGIN [Concomitant]
  11. CYCLOSPORINE [Interacting]
  12. SIROLIMUS [Interacting]
  13. NIFEDIPINE [Interacting]

REACTIONS (5)
  - Malabsorption [Unknown]
  - Prescribed overdose [Unknown]
  - Nausea [Unknown]
  - Vomiting [Unknown]
  - Drug interaction [Unknown]
